FAERS Safety Report 11810229 (Version 1)
Quarter: 2015Q4

REPORT INFORMATION
  Report Type: Spontaneous
  Country: US (occurrence: None)
  Receive Date: 20151207
  Receipt Date: 20151207
  Transmission Date: 20160305
  Serious: Yes (Disabling)
  Sender: FDA-Public Use
  Company Number: None

PATIENT
  Age: 25 Year
  Sex: Female
  Weight: 70.31 kg

DRUGS (9)
  1. HYDROCODAINE [Concomitant]
  2. FLEXERIL [Concomitant]
     Active Substance: CYCLOBENZAPRINE HYDROCHLORIDE
  3. FISH OIL [Concomitant]
     Active Substance: FISH OIL
  4. COPAXONE [Concomitant]
     Active Substance: GLATIRAMER ACETATE
  5. REBIF [Concomitant]
     Active Substance: INTERFERON BETA-1A
  6. NURROTINE (GABBAPITAN) [Concomitant]
  7. DEPO-PROVERA [Suspect]
     Active Substance: MEDROXYPROGESTERONE ACETATE
  8. XANAX [Concomitant]
     Active Substance: ALPRAZOLAM
  9. VITAMIN D [Suspect]
     Active Substance: CHOLECALCIFEROL

REACTIONS (1)
  - Multiple sclerosis [None]

NARRATIVE: CASE EVENT DATE: 20151205
